FAERS Safety Report 7968861-7 (Version None)
Quarter: 2011Q4

REPORT INFORMATION
  Report Type: 
  Country: None (occurrence: None)
  Receive Date: 20111209
  Receipt Date: 20111202
  Transmission Date: 20120403
  Serious: Yes (Other)
  Sender: FDA-Public Use
  Company Number: PHHY2011BR106016

PATIENT
  Age: 48 Year
  Sex: Female

DRUGS (5)
  1. ANAFRANIL [Suspect]
     Dosage: 25 MG, UNK
     Route: 048
  2. VISKEN [Suspect]
     Dosage: UNK UKN, DAILY
  3. LEVOTHYROXINE SODIUM [Suspect]
     Dosage: UNK UKN, DAILY
  4. CLONAZEPAM [Suspect]
     Dosage: UNK UKN, UNK
  5. SIMVASTATIN [Suspect]
     Dosage: UNK UKN, UNK

REACTIONS (11)
  - BIPOLAR I DISORDER [None]
  - HYPOTHYROIDISM [None]
  - BLOOD CORTISOL DECREASED [None]
  - DECREASED APPETITE [None]
  - WEIGHT INCREASED [None]
  - PANIC DISORDER [None]
  - BLOOD CHOLESTEROL INCREASED [None]
  - ANXIETY [None]
  - HYPERTENSION [None]
  - BLOOD CORTICOTROPHIN DECREASED [None]
  - OBSESSIVE-COMPULSIVE DISORDER [None]
